FAERS Safety Report 21244937 (Version 2)
Quarter: 2022Q3

REPORT INFORMATION
  Report Type: Spontaneous
  Country: CL (occurrence: CL)
  Receive Date: 20220823
  Receipt Date: 20220909
  Transmission Date: 20221027
  Serious: Yes (Other)
  Sender: FDA-Public Use
  Company Number: CL-BoehringerIngelheim-2022-BI-187645

PATIENT
  Age: 37 Year
  Sex: Female

DRUGS (1)
  1. ALTEPLASE [Suspect]
     Active Substance: ALTEPLASE
     Indication: Fibrinolysis
     Dosage: 10CC EVERY 8H
     Route: 065
     Dates: start: 20220810, end: 20220810

REACTIONS (4)
  - Drug ineffective [Unknown]
  - Product packaging confusion [Unknown]
  - Off label use [Unknown]
  - No adverse event [Unknown]

NARRATIVE: CASE EVENT DATE: 20220810
